FAERS Safety Report 9670646 (Version 1)
Quarter: 2013Q4

REPORT INFORMATION
  Report Type: Report from Study
  Country: US (occurrence: US)
  Receive Date: 20131106
  Receipt Date: 20131106
  Transmission Date: 20140711
  Serious: Yes (Other)
  Sender: FDA-Public Use
  Company Number: US-ABBVIE-13P-163-1163403-00

PATIENT
  Age: 81 Year
  Sex: Male
  Weight: 90.35 kg

DRUGS (4)
  1. HUMIRA [Suspect]
     Indication: PSORIASIS
     Dates: start: 20130624
  2. ALKA SELTZER [Concomitant]
     Indication: DYSPEPSIA
  3. METFORMIN [Concomitant]
     Indication: DIABETES MELLITUS
  4. UNKNOWN MEDICATION [Concomitant]
     Indication: HYPERTENSION

REACTIONS (1)
  - Deafness [Not Recovered/Not Resolved]
